FAERS Safety Report 6260495-8 (Version None)
Quarter: 2009Q3

REPORT INFORMATION
  Report Type: 
  Country: None (occurrence: None)
  Receive Date: 20090708
  Receipt Date: 20090629
  Transmission Date: 20100115
  Serious: Yes (Death)
  Sender: FDA-Public Use
  Company Number: US-TEVA-200205USA

PATIENT
  Age: 59 Year
  Sex: Male

DRUGS (3)
  1. VINCRISTINE SULFATE 1 MG/ML; 1MG/1 ML; 2 MG/2 [Suspect]
     Indication: GLIOMA
  2. LOMUSTINE [Suspect]
     Indication: GLIOMA
  3. TEMOZOLOMIDE [Suspect]
     Indication: GLIOMA

REACTIONS (2)
  - ACUTE MYELOID LEUKAEMIA [None]
  - MYELODYSPLASTIC SYNDROME [None]
